FAERS Safety Report 20016454 (Version 1)
Quarter: 2021Q4

REPORT INFORMATION
  Report Type: Spontaneous
  Country: US (occurrence: None)
  Receive Date: 20211103
  Receipt Date: 20211103
  Transmission Date: 20220303
  Serious: Yes (Disabling)
  Sender: FDA-Public Use
  Company Number: None

PATIENT
  Age: 58 Year
  Sex: Male
  Weight: 96.3 kg

DRUGS (2)
  1. ABILIFY [Suspect]
     Active Substance: ARIPIPRAZOLE
     Indication: Paranoia
     Dosage: OTHER QUANTITY : 30 TABLET(S);?
     Route: 054
     Dates: start: 20020601, end: 20210930
  2. ABILIFY [Suspect]
     Active Substance: ARIPIPRAZOLE
     Indication: Schizophrenia

REACTIONS (7)
  - Depression [None]
  - Drug ineffective [None]
  - Thinking abnormal [None]
  - Head discomfort [None]
  - Balance disorder [None]
  - Illness [None]
  - Memory impairment [None]

NARRATIVE: CASE EVENT DATE: 20210930
